FAERS Safety Report 23358521 (Version 2)
Quarter: 2024Q1

REPORT INFORMATION
  Report Type: Spontaneous
  Country: ET (occurrence: ET)
  Receive Date: 20240102
  Receipt Date: 20240105
  Transmission Date: 20240409
  Serious: Yes (Other)
  Sender: FDA-Public Use
  Company Number: ET-002147023-NVSC2023ET276653

PATIENT
  Sex: Female

DRUGS (1)
  1. GLIVEC [Suspect]
     Active Substance: IMATINIB MESYLATE
     Indication: Chronic myeloid leukaemia
     Dosage: 400 MG (4X100 MG)
     Route: 065

REACTIONS (3)
  - Blast crisis in myelogenous leukaemia [Unknown]
  - Chronic myeloid leukaemia [Unknown]
  - Therapy non-responder [Unknown]
